FAERS Safety Report 5531872-5 (Version None)
Quarter: 2007Q4

REPORT INFORMATION
  Report Type: 
  Country: None (occurrence: None)
  Receive Date: 20071203
  Receipt Date: 20071121
  Transmission Date: 20080405
  Serious: Yes (Other)
  Sender: FDA-Public Use
  Company Number: DE-ROCHE-533238

PATIENT
  Sex: Female

DRUGS (2)
  1. ROCEPHIN [Suspect]
     Dosage: GIVEN AS INFUSION
     Route: 065
     Dates: start: 20060101, end: 20060101
  2. CLARITHROMYCIN [Concomitant]
     Dates: start: 20070101, end: 20070101

REACTIONS (2)
  - ABDOMINAL PAIN UPPER [None]
  - CHOLELITHIASIS [None]
